FAERS Safety Report 9170522 (Version 2)
Quarter: 2013Q2

REPORT INFORMATION
  Report Type: Spontaneous
  Country: US (occurrence: US)
  Receive Date: 20130319
  Receipt Date: 20130605
  Transmission Date: 20140414
  Serious: No
  Sender: FDA-Public Use
  Company Number: US-009507513-1303USA008549

PATIENT
  Age: 41 Year
  Sex: Male
  Weight: 70.76 kg

DRUGS (7)
  1. VICTRELIS [Suspect]
     Indication: HEPATITIS C
     Dosage: 800 MG, TID
     Route: 048
     Dates: start: 20121219
  2. REBETOL [Suspect]
     Dosage: UNK
     Route: 048
     Dates: start: 20121121
  3. REBETOL [Suspect]
     Dosage: UNK
  4. PEGASYS [Suspect]
     Dosage: 180 MG, QW
     Route: 058
     Dates: start: 20121121
  5. PRINIVIL [Concomitant]
  6. REMERON [Concomitant]
  7. SINEQUAN [Concomitant]

REACTIONS (20)
  - Rash pruritic [Recovered/Resolved]
  - Papule [Not Recovered/Not Resolved]
  - Petechiae [Not Recovered/Not Resolved]
  - Neutropenia [Not Recovered/Not Resolved]
  - Nephrolithiasis [Unknown]
  - White blood cell count decreased [Unknown]
  - Red blood cell count decreased [Unknown]
  - Haemoglobin decreased [Unknown]
  - Haematocrit decreased [Unknown]
  - Red cell distribution width increased [Unknown]
  - Platelet count decreased [Unknown]
  - Neutrophil count decreased [Unknown]
  - Lymphocyte count decreased [Unknown]
  - Haemoglobin decreased [Unknown]
  - Red cell distribution width increased [Unknown]
  - Platelet count decreased [Unknown]
  - Neutrophil count decreased [Unknown]
  - Iron binding capacity unsaturated decreased [Unknown]
  - Blood iron increased [Unknown]
  - Serum ferritin increased [Unknown]
